FAERS Safety Report 5981183-9 (Version None)
Quarter: 2008Q4

REPORT INFORMATION
  Report Type: 
  Country: None (occurrence: None)
  Receive Date: 20081205
  Receipt Date: 20081128
  Transmission Date: 20090506
  Serious: Yes (Hospitalization)
  Sender: FDA-Public Use
  Company Number: B0543796A

PATIENT
  Age: 77 Year
  Sex: Female

DRUGS (5)
  1. PAXIL [Suspect]
     Indication: DEPRESSION
     Dosage: 10MG PER DAY
     Route: 048
     Dates: start: 20081010, end: 20081015
  2. HALCION [Concomitant]
     Indication: INSOMNIA
     Dosage: .25MG PER DAY
     Route: 048
     Dates: start: 20080719, end: 20081015
  3. LEDOLPER [Concomitant]
     Indication: INSOMNIA
     Dosage: .25MG PER DAY
     Route: 048
     Dates: start: 20080719, end: 20081015
  4. BETAMAC T [Concomitant]
     Indication: DEPRESSION
     Dosage: 150MG PER DAY
     Route: 048
     Dates: start: 20080911, end: 20081015
  5. NORVASC [Concomitant]
     Indication: HYPERTENSION
     Dosage: 5MG PER DAY
     Route: 048
     Dates: start: 20080719, end: 20081016

REACTIONS (8)
  - ANOREXIA [None]
  - BLOOD PRESSURE ABNORMAL [None]
  - DEHYDRATION [None]
  - HEPATIC FAILURE [None]
  - NEPHRITIS [None]
  - PAIN [None]
  - PYREXIA [None]
  - URINARY TRACT INFLAMMATION [None]
